FAERS Safety Report 8042779-6 (Version None)
Quarter: 2011Q4

REPORT INFORMATION
  Report Type: 
  Country: None (occurrence: None)
  Receive Date: 20111209
  Receipt Date: 20111128
  Transmission Date: 20120403
  Serious: Yes (Other)
  Sender: FDA-Public Use
  Company Number: FPV1-2011-00802

PATIENT
  Age: 6 Year
  Sex: Female
  Weight: 16.5 kg

DRUGS (6)
  1. AMPHETAMINES [Suspect]
     Indication: PRODUCT USED FOR UNKNOWN INDICATION
     Dosage: 10 MG (IN THE AFTERNOON), 1X/DAY: QD, ORAL
     Route: 048
     Dates: start: 20110101
  2. GUANFACINE HYDROCHLORIDE [Concomitant]
  3. INTUNIV [Suspect]
     Indication: ATTENTION DEFICIT/HYPERACTIVITY DISORDER
     Dosage: 1 MG,, ORAL, 2MG,, ORAL
     Route: 048
     Dates: start: 20110101, end: 20110101
  4. INTUNIV [Suspect]
     Indication: ATTENTION DEFICIT/HYPERACTIVITY DISORDER
     Dosage: 1 MG,, ORAL, 2MG,, ORAL
     Route: 048
     Dates: start: 20110428, end: 20110101
  5. CORTICOSTEROID NOS [Concomitant]
  6. VYVANSE [Suspect]
     Indication: ATTENTION DEFICIT/HYPERACTIVITY DISORDER
     Dosage: 50 MG,, ORAL
     Route: 048
     Dates: start: 20100101

REACTIONS (8)
  - MOOD SWINGS [None]
  - DRUG EFFECT DECREASED [None]
  - SOMNOLENCE [None]
  - SCREAMING [None]
  - GRAND MAL CONVULSION [None]
  - DYSKINESIA [None]
  - FEAR [None]
  - TREMOR [None]
